FAERS Safety Report 7521413-5 (Version None)
Quarter: 2011Q2

REPORT INFORMATION
  Report Type: 
  Country: None (occurrence: None)
  Receive Date: 20110603
  Receipt Date: 20101221
  Transmission Date: 20111010
  Serious: Yes (Death, Other)
  Sender: FDA-Public Use
  Company Number: CN-BAYER-201045102GPV

PATIENT
  Age: 51 Year
  Sex: Male

DRUGS (1)
  1. ULTRAVIST 150 [Suspect]
     Indication: SCAN WITH CONTRAST
     Route: 042
     Dates: start: 20101103, end: 20101103

REACTIONS (12)
  - LOSS OF CONSCIOUSNESS [None]
  - HEART RATE INCREASED [None]
  - DEATH [None]
  - RESTLESSNESS [None]
  - HYPERHIDROSIS [None]
  - BLOOD PRESSURE IMMEASURABLE [None]
  - MYDRIASIS [None]
  - SINUS TACHYCARDIA [None]
  - SHOCK [None]
  - CARDIAC ARREST [None]
  - PYREXIA [None]
  - DYSPNOEA [None]
